FAERS Safety Report 8184499-3 (Version None)
Quarter: 2012Q1

REPORT INFORMATION
  Report Type: 
  Country: None (occurrence: None)
  Receive Date: 20120305
  Receipt Date: 20120301
  Transmission Date: 20120608
  Serious: Yes (Hospitalization)
  Sender: FDA-Public Use
  Company Number: FR-ABBOTT-12P-056-0899366-00

PATIENT
  Sex: Female
  Weight: 42 kg

DRUGS (3)
  1. HUMIRA [Suspect]
     Dates: start: 20120222
  2. HUMIRA [Suspect]
     Indication: CROHN'S DISEASE
     Dates: start: 20111220, end: 20120113
  3. IMURAN [Suspect]
     Indication: CROHN'S DISEASE
     Route: 048
     Dates: start: 20000101, end: 20120101

REACTIONS (3)
  - ABSCESS INTESTINAL [None]
  - TUBO-OVARIAN ABSCESS [None]
  - INTESTINAL FISTULA [None]
